FAERS Safety Report 24604956 (Version 2)
Quarter: 2024Q4

REPORT INFORMATION
  Report Type: Spontaneous
  Country: AU (occurrence: AU)
  Receive Date: 20241111
  Receipt Date: 20241206
  Transmission Date: 20250115
  Serious: Yes (Other)
  Sender: OTSUKA
  Company Number: AU-OTSUKA-2024_029876

PATIENT
  Age: 21 Year
  Sex: Male

DRUGS (1)
  1. ABILIFY [Suspect]
     Active Substance: ARIPIPRAZOLE
     Indication: Product used for unknown indication
     Dosage: UNK
     Route: 065

REACTIONS (7)
  - Tongue paralysis [Unknown]
  - Erectile dysfunction [Unknown]
  - Personality change [Unknown]
  - Dyspepsia [Unknown]
  - Gambling disorder [Unknown]
  - Weight increased [Unknown]
  - Therapeutic product ineffective [Unknown]
